FAERS Safety Report 19424081 (Version 1)
Quarter: 2021Q2

REPORT INFORMATION
  Report Type: Spontaneous
  Country: US (occurrence: US)
  Receive Date: 20210616
  Receipt Date: 20210616
  Transmission Date: 20210717
  Serious: No
  Sender: FDA-Public Use
  Company Number: US-B.I. PHARMACEUTICALS,INC./RIDGEFIELD-2021-BI-109819

PATIENT
  Age: 60 Year
  Sex: Female

DRUGS (1)
  1. COMBIVENT [Suspect]
     Active Substance: ALBUTEROL SULFATE\IPRATROPIUM BROMIDE
     Indication: ASTHMA
     Dosage: 1 PUFF IN THE MORNING, 1 PUFF AT LUNCH AS NEEDED, 1 PUFF IN THE EVENING
     Route: 065
     Dates: start: 2019

REACTIONS (4)
  - Off label use [Unknown]
  - Product quality issue [Unknown]
  - Intentional product misuse [Unknown]
  - Wheezing [Not Recovered/Not Resolved]

NARRATIVE: CASE EVENT DATE: 20210613
